FAERS Safety Report 9463707 (Version 2)
Quarter: 2013Q3

REPORT INFORMATION
  Report Type: Spontaneous
  Country: ES (occurrence: ES)
  Receive Date: 20130819
  Receipt Date: 20130903
  Transmission Date: 20140515
  Serious: Yes (Life-Threatening, Hospitalization, Disabling, Other)
  Sender: FDA-Public Use
  Company Number: PHHY2013ES088845

PATIENT
  Age: 66 Year
  Sex: Female

DRUGS (6)
  1. TASIGNA [Suspect]
     Indication: ACUTE LYMPHOCYTIC LEUKAEMIA
     Dosage: 300 MG, DAILY
     Route: 048
     Dates: start: 20130520, end: 20130527
  2. TASIGNA [Suspect]
     Indication: OFF LABEL USE
     Dosage: 300 MG, BID
     Route: 048
     Dates: start: 20130617, end: 20130816
  3. ALMAGATE [Concomitant]
  4. OMEPRAZOLE [Concomitant]
     Dosage: 20 MG, QD
  5. POTASSIUM [Concomitant]
  6. EPREX [Concomitant]
     Dosage: 40000 IU, WEEKLY

REACTIONS (9)
  - Polyneuropathy [Not Recovered/Not Resolved]
  - Tuberculosis [Recovered/Resolved]
  - Neurotoxicity [Unknown]
  - Sensory loss [Unknown]
  - Pleural effusion [Recovered/Resolved]
  - Asthenia [Unknown]
  - Paraesthesia [Unknown]
  - Blindness [Unknown]
  - Renal failure chronic [Unknown]
